FAERS Safety Report 4632746-4 (Version None)
Quarter: 2005Q2

REPORT INFORMATION
  Report Type: 
  Country: None (occurrence: None)
  Receive Date: 20050408
  Receipt Date: 20050408
  Transmission Date: 20051028
  Serious: Yes (Other)
  Sender: FDA-Public Use
  Company Number: None

PATIENT
  Sex: Male
  Weight: 73.0291 kg

DRUGS (1)
  1. TRIAMPTERENE/HYDROCHLOROTHIAZIDE (TMT/HCTZ)   75/50  GENERIC [Suspect]
     Indication: HYPERTENSION
     Dosage: 1   QD  ORAL
     Route: 048
     Dates: start: 20041210, end: 20050315

REACTIONS (6)
  - CHILLS [None]
  - DIZZINESS [None]
  - FATIGUE [None]
  - RENAL FAILURE [None]
  - STREPTOCOCCAL SEROLOGY POSITIVE [None]
  - WEIGHT DECREASED [None]
